FAERS Safety Report 13504108 (Version 1)
Quarter: 2017Q2

REPORT INFORMATION
  Report Type: Spontaneous
  Country: US (occurrence: US)
  Receive Date: 20170502
  Receipt Date: 20170502
  Transmission Date: 20170830
  Serious: Yes (Hospitalization, Disabling, Other)
  Sender: FDA-Public Use
  Company Number: US-BRISTOL-MYERS SQUIBB COMPANY-BMS-2017-036174

PATIENT
  Sex: Male
  Weight: 122.45 kg

DRUGS (2)
  1. OPDIVO [Suspect]
     Active Substance: NIVOLUMAB
     Indication: SPINDLE CELL SARCOMA
     Route: 042
  2. YERVOY [Suspect]
     Active Substance: IPILIMUMAB
     Indication: SPINDLE CELL SARCOMA
     Route: 042

REACTIONS (9)
  - Back pain [Unknown]
  - Acute kidney injury [Unknown]
  - Type 2 diabetes mellitus [Unknown]
  - Pancreatitis [Unknown]
  - Amnesia [Unknown]
  - Arthritis [Unknown]
  - Malignant neoplasm progression [Unknown]
  - Pneumonia [Unknown]
  - Product use in unapproved indication [Unknown]
